FAERS Safety Report 25291068 (Version 5)
Quarter: 2025Q2

REPORT INFORMATION
  Report Type: Spontaneous
  Country: US (occurrence: US)
  Receive Date: 20250510
  Receipt Date: 20250528
  Transmission Date: 20250716
  Serious: No
  Sender: SANOFI AVENTIS
  Company Number: US-SANOFI-02498129

PATIENT
  Age: 45 Year
  Sex: Male

DRUGS (1)
  1. LANTUS SOLOSTAR [Suspect]
     Active Substance: INSULIN GLARGINE

REACTIONS (6)
  - Blood glucose increased [Unknown]
  - Headache [Unknown]
  - Back pain [Unknown]
  - Neck pain [Unknown]
  - Blood glucose decreased [Unknown]
  - Tremor [Unknown]
